FAERS Safety Report 6450901-8 (Version None)
Quarter: 2009Q4

REPORT INFORMATION
  Report Type: 
  Country: None (occurrence: None)
  Receive Date: 20091123
  Receipt Date: 20091120
  Transmission Date: 20100525
  Serious: Yes (Hospitalization)
  Sender: FDA-Public Use
  Company Number: A0822106A

PATIENT
  Age: 52 Year
  Sex: Female

DRUGS (1)
  1. ALLI [Suspect]
     Route: 048
     Dates: start: 20090501

REACTIONS (5)
  - BLOOD POTASSIUM DECREASED [None]
  - FATIGUE [None]
  - HYPOKALAEMIA [None]
  - MUSCLE SPASMS [None]
  - PARALYSIS [None]
